FAERS Safety Report 11672966 (Version 1)
Quarter: 2015Q4

REPORT INFORMATION
  Report Type: Spontaneous
  Country: US (occurrence: US)
  Receive Date: 20151027
  Receipt Date: 20151027
  Transmission Date: 20160304
  Serious: No
  Sender: FDA-Public Use
  Company Number: US-ELI_LILLY_AND_COMPANY-US201006004203

PATIENT
  Age: 82 Year
  Sex: Female

DRUGS (2)
  1. LANTUS [Concomitant]
     Active Substance: INSULIN GLARGINE
     Indication: DIABETES MELLITUS
     Dosage: UNK, UNKNOWN
  2. FORTEO [Suspect]
     Active Substance: TERIPARATIDE
     Indication: OSTEOPOROSIS
     Dosage: 20 UG, DAILY (1/D)
     Dates: end: 20100707

REACTIONS (7)
  - Fall [Recovered/Resolved]
  - Hypertension [Unknown]
  - Fear [Unknown]
  - Dizziness [Unknown]
  - Feeling abnormal [Unknown]
  - Fall [Recovered/Resolved]
  - Hearing impaired [Unknown]

NARRATIVE: CASE EVENT DATE: 20091225
